FAERS Safety Report 7496847-8 (Version None)
Quarter: 2011Q2

REPORT INFORMATION
  Report Type: 
  Country: None (occurrence: None)
  Receive Date: 20110516
  Receipt Date: 20110507
  Transmission Date: 20111010
  Serious: Yes (Other)
  Sender: FDA-Public Use
  Company Number: GB-ACCORD-009035

PATIENT
  Age: 78 Year
  Sex: Female

DRUGS (5)
  1. OMEPRAZOLE [Suspect]
     Indication: TEMPORAL ARTERITIS
     Dosage: 20.00-MG-1.00 TIMES PER-1.0DAYS
  2. SIMVASTATIN [Suspect]
     Indication: PRODUCT USED FOR UNKNOWN INDICATION
     Dosage: 20.00-MG-1.00 TIMES PER-1.0DAYS
  3. PREDNISOLONE [Suspect]
     Indication: TEMPORAL ARTERITIS
     Dosage: 9.00-MG-1.00 TIMES PER-1.0DAYS
  4. ISOSORBIDE MONONITRATE [Suspect]
     Indication: PRODUCT USED FOR UNKNOWN INDICATION
  5. ATENOLOL [Suspect]
     Indication: PRODUCT USED FOR UNKNOWN INDICATION

REACTIONS (1)
  - CUTANEOUS LUPUS ERYTHEMATOSUS [None]
